FAERS Safety Report 5966185-0 (Version None)
Quarter: 2008Q4

REPORT INFORMATION
  Report Type: 
  Country: None (occurrence: None)
  Receive Date: 20081125
  Receipt Date: 20081124
  Transmission Date: 20090506
  Serious: Yes (Hospitalization)
  Sender: FDA-Public Use
  Company Number: US-BRISTOL-MYERS SQUIBB COMPANY-14418560

PATIENT
  Age: 83 Year
  Sex: Female

DRUGS (10)
  1. COUMADIN [Suspect]
     Indication: AORTIC VALVE REPLACEMENT
     Route: 048
     Dates: start: 19950101
  2. LEXAPRO [Suspect]
     Indication: DEPRESSION
     Dosage: 10 MG TABS
     Route: 048
     Dates: start: 20080401
  3. TORSEMIDE [Concomitant]
     Indication: HYPERTENSION
  4. NADOLOL [Concomitant]
     Indication: HYPERTENSION
  5. POTASSIUM CHLORIDE [Concomitant]
  6. CLONIDINE [Concomitant]
     Indication: HYPERTENSION
  7. MECLIZINE [Concomitant]
  8. MONOPRIL [Concomitant]
     Indication: HYPERTENSION
  9. NEURONTIN [Concomitant]
     Indication: NEUROPATHY PERIPHERAL
  10. VITAMINS NOS [Concomitant]

REACTIONS (1)
  - ULCER [None]
